FAERS Safety Report 18929006 (Version 3)
Quarter: 2022Q1

REPORT INFORMATION
  Report Type: Spontaneous
  Country: VE (occurrence: VE)
  Receive Date: 20210223
  Receipt Date: 20220302
  Transmission Date: 20220423
  Serious: Yes (Hospitalization, Other)
  Sender: FDA-Public Use
  Company Number: VE-NOVARTISPH-NVSC2020VE342801

PATIENT
  Sex: Male

DRUGS (1)
  1. GLIVEC [Suspect]
     Active Substance: IMATINIB MESYLATE
     Indication: Chronic myeloid leukaemia
     Dosage: 400 MG (4 OF 100 MG)
     Route: 065

REACTIONS (13)
  - Asphyxia [Unknown]
  - Hypertensive cardiomyopathy [Unknown]
  - Aortic aneurysm [Unknown]
  - General physical health deterioration [Unknown]
  - Infection [Unknown]
  - Visual impairment [Unknown]
  - Throat lesion [Unknown]
  - COVID-19 [Unknown]
  - Bronchial secretion retention [Not Recovered/Not Resolved]
  - Productive cough [Unknown]
  - Blood uric acid increased [Unknown]
  - Weight decreased [Unknown]
  - Malaise [Unknown]
